FAERS Safety Report 9086472 (Version 1)
Quarter: 2013Q1

REPORT INFORMATION
  Report Type: Spontaneous
  Country: GB (occurrence: GB)
  Receive Date: 20130218
  Receipt Date: 20130218
  Transmission Date: 20140127
  Serious: Yes (Hospitalization)
  Sender: FDA-Public Use
  Company Number: GB-RANBAXY-2013R1-65186

PATIENT
  Age: 31 Year
  Sex: Female
  Weight: 100 kg

DRUGS (6)
  1. CEFALEXIN [Suspect]
     Indication: AXILLARY MASS
     Dosage: 250 MG, TID
     Route: 048
     Dates: start: 20130116, end: 20130119
  2. AUGMENTIN [Concomitant]
     Indication: PRODUCT USED FOR UNKNOWN INDICATION
     Dosage: UNK
     Route: 065
  3. DICLOFENAC [Concomitant]
     Indication: PRODUCT USED FOR UNKNOWN INDICATION
     Dosage: UNK
     Route: 065
  4. ENOXAPARIN [Concomitant]
     Indication: PRODUCT USED FOR UNKNOWN INDICATION
     Dosage: UNK
     Route: 065
  5. LEVOTHYROXINE [Concomitant]
     Indication: THYROXINE FREE DECREASED
     Dosage: UNK
     Route: 065
  6. PARACETAMOL [Concomitant]
     Indication: PRODUCT USED FOR UNKNOWN INDICATION
     Dosage: UNK
     Route: 065

REACTIONS (12)
  - Hypersensitivity [Unknown]
  - Rash erythematous [Unknown]
  - Ocular hyperaemia [Unknown]
  - Rash pruritic [Unknown]
  - Pruritus [Unknown]
  - Periorbital oedema [Unknown]
  - Rash generalised [Unknown]
  - Skin lesion [Unknown]
  - Eyelid oedema [Unknown]
  - Eye swelling [Unknown]
  - Urticaria [Recovering/Resolving]
  - Wound decomposition [Unknown]
